APPROVED DRUG PRODUCT: HEPARIN SODIUM 20,000 UNITS AND DEXTROSE 5% IN PLASTIC CONTAINER
Active Ingredient: HEPARIN SODIUM
Strength: 4,000 UNITS/100ML
Dosage Form/Route: INJECTABLE;INJECTION
Application: N018814 | Product #001
Applicant: BAXTER HEALTHCARE CORP
Approved: Oct 31, 1983 | RLD: No | RS: No | Type: DISCN